FAERS Safety Report 6936734-4 (Version None)
Quarter: 2010Q3

REPORT INFORMATION
  Report Type: 
  Country: None (occurrence: None)
  Receive Date: 20100823
  Receipt Date: 20100818
  Transmission Date: 20110219
  Serious: Yes (Hospitalization, Other)
  Sender: FDA-Public Use
  Company Number: JP-SANOFI-AVENTIS-2010SA045684

PATIENT
  Age: 60 Year
  Sex: Male
  Weight: 73.6 kg

DRUGS (7)
  1. ALLEGRA [Suspect]
     Indication: URTICARIA
     Dosage: DOSAGE UNKNOWN
     Route: 048
     Dates: start: 20100710, end: 20100715
  2. CLEMASTINE FUMARATE [Suspect]
     Indication: URTICARIA
     Route: 048
     Dates: start: 20100710, end: 20100715
  3. AMLODIPINE [Concomitant]
     Indication: HYPERTENSION
     Dosage: 1T, IN THE MORNING
     Route: 048
  4. SIMVASTATIN [Concomitant]
     Indication: HYPERLIPIDAEMIA
     Dosage: 1T, IN THE EVENING
     Route: 048
  5. ALLOPURINOL [Concomitant]
     Indication: HYPERURICAEMIA
     Dosage: 1T, IN THE EVENING
     Route: 048
  6. HYPEN [Concomitant]
     Dosage: 2T, TWICE/DAY
     Route: 048
  7. NIZATIDINE [Concomitant]
     Dosage: 2T, TWICE/DAY
     Route: 048

REACTIONS (3)
  - ASTHENIA [None]
  - BLOOD CREATINE PHOSPHOKINASE INCREASED [None]
  - DIPLOPIA [None]
